FAERS Safety Report 23087393 (Version 1)
Quarter: 2023Q4

REPORT INFORMATION
  Report Type: Spontaneous
  Country: US (occurrence: US)
  Receive Date: 20231020
  Receipt Date: 20231020
  Transmission Date: 20240109
  Serious: No
  Sender: FDA-Public Use
  Company Number: US-BEH-2023164320

PATIENT
  Age: 10 Year
  Sex: Male
  Weight: 30.839 kg

DRUGS (3)
  1. HIZENTRA [Suspect]
     Active Substance: HUMAN IMMUNOGLOBULIN G
     Indication: Immunodeficiency common variable
     Dosage: 7 GRAM, QOW
     Route: 058
     Dates: start: 2017
  2. HIZENTRA [Suspect]
     Active Substance: HUMAN IMMUNOGLOBULIN G
     Dosage: UNK UNK, QW
     Route: 058
     Dates: start: 20231008
  3. LIDOCAINE [Concomitant]
     Active Substance: LIDOCAINE
     Indication: Premedication
     Dosage: UNK
     Dates: start: 20231008

REACTIONS (9)
  - Burning sensation [Unknown]
  - Pain [Unknown]
  - Infusion site discolouration [Not Recovered/Not Resolved]
  - Malaise [Unknown]
  - Abdominal pain upper [Unknown]
  - Infusion site erythema [Unknown]
  - Infusion site mass [Unknown]
  - Infusion site discharge [Unknown]
  - Infusion site pain [Unknown]

NARRATIVE: CASE EVENT DATE: 20231008
